FAERS Safety Report 7127543-4 (Version None)
Quarter: 2010Q4

REPORT INFORMATION
  Report Type: 
  Country: None (occurrence: None)
  Receive Date: 20101129
  Receipt Date: 20100719
  Transmission Date: 20110411
  Serious: No
  Sender: FDA-Public Use
  Company Number: US-PFIZER INC-2010090775

PATIENT
  Sex: Male
  Weight: 70.295 kg

DRUGS (4)
  1. VIAGRA [Suspect]
     Indication: ELDERLY
     Dosage: 100 MG, UNK
     Route: 048
  2. ALLOPURINOL [Concomitant]
     Indication: PROPHYLAXIS
     Dosage: 300 MG, DAILY UNK
  3. COLCHICINE [Concomitant]
     Indication: PROPHYLAXIS
     Dosage: 0.6 MG, DAILY UNK
  4. HYDROCHLOROTHIAZIDE [Concomitant]
     Indication: HYPERTENSION
     Dosage: 25 MG, DAILY UNK

REACTIONS (1)
  - DRUG INEFFECTIVE [None]
